FAERS Safety Report 10539490 (Version 3)
Quarter: 2014Q4

REPORT INFORMATION
  Report Type: Spontaneous
  Country: FR (occurrence: FR)
  Receive Date: 20141023
  Receipt Date: 20141031
  Transmission Date: 20150529
  Serious: Yes (Other)
  Sender: FDA-Public Use
  Company Number: FR-AMGEN-FRASP2014071636

PATIENT
  Age: 68 Year
  Sex: Female
  Weight: 70 kg

DRUGS (1)
  1. PROLIA [Suspect]
     Active Substance: DENOSUMAB
     Indication: OSTEOPOROSIS
     Dosage: UNK
     Route: 065
     Dates: start: 20140614

REACTIONS (5)
  - Venous thrombosis [Unknown]
  - Asthenia [Unknown]
  - Pruritus [Unknown]
  - Phlebitis [Recovering/Resolving]
  - Arthropod sting [Unknown]

NARRATIVE: CASE EVENT DATE: 201409
